FAERS Safety Report 6354569-0 (Version None)
Quarter: 2009Q3

REPORT INFORMATION
  Report Type: 
  Country: None (occurrence: None)
  Receive Date: 20090914
  Receipt Date: 20090914
  Transmission Date: 20100115
  Serious: Yes (Death, Other)
  Sender: FDA-Public Use
  Company Number: JP-B.I. PHARMACEUTICALS,INC./RIDGEFIELD-2009-BP-10679NB

PATIENT
  Sex: Male
  Weight: 79 kg

DRUGS (2)
  1. MICARDIS [Suspect]
     Indication: HYPERTENSION
     Dosage: 40 MG
     Route: 048
     Dates: start: 20060711, end: 20081210
  2. INSULIN [Concomitant]
     Route: 042

REACTIONS (2)
  - PANCREATITIS [None]
  - SHOCK [None]
